FAERS Safety Report 11250360 (Version 1)
Quarter: 2015Q3

REPORT INFORMATION
  Report Type: Spontaneous
  Country: US (occurrence: US)
  Receive Date: 20150708
  Receipt Date: 20150708
  Transmission Date: 20151125
  Serious: Yes (Other)
  Sender: FDA-Public Use
  Company Number: US-ELI_LILLY_AND_COMPANY-US200808002686

PATIENT
  Age: 69 Year
  Sex: Male

DRUGS (1)
  1. XIGRIS [Suspect]
     Active Substance: DROTRECOGIN ALFA (ACTIVATED)
     Indication: SEPSIS
     Dosage: UNK, UNK
     Dates: start: 20080812

REACTIONS (3)
  - Platelet count decreased [Unknown]
  - International normalised ratio increased [Unknown]
  - Activated partial thromboplastin time prolonged [Unknown]

NARRATIVE: CASE EVENT DATE: 20080812
